FAERS Safety Report 9140893 (Version 2)
Quarter: 2013Q2

REPORT INFORMATION
  Report Type: Spontaneous
  Country: US (occurrence: US)
  Receive Date: 20130305
  Receipt Date: 20130409
  Transmission Date: 20140414
  Serious: Yes (Other)
  Sender: FDA-Public Use
  Company Number: CHPA2013US003882

PATIENT
  Age: 73 Year
  Sex: Female

DRUGS (4)
  1. GAS-X EXTRA STRENGTH SOFTGELS [Suspect]
     Indication: GASTROOESOPHAGEAL REFLUX DISEASE
     Dosage: AS DIRECTED
     Route: 048
  2. GAS-X EXTRA STRENGTH SOFTGELS [Suspect]
     Indication: GASTRITIS
  3. GAS-X EXTRA STRENGTH SOFTGELS [Suspect]
     Indication: FLATULENCE
  4. GAS-X EXTRA STRENGTH SOFTGELS [Suspect]
     Indication: MUSCLE SPASMS

REACTIONS (3)
  - Diverticulitis [Unknown]
  - Drug ineffective for unapproved indication [Unknown]
  - Drug ineffective [Unknown]
